FAERS Safety Report 4659531-1 (Version None)
Quarter: 2005Q2

REPORT INFORMATION
  Report Type: 
  Country: None (occurrence: None)
  Receive Date: 20050510
  Receipt Date: 20050425
  Transmission Date: 20051028
  Serious: Yes (Hospitalization)
  Sender: FDA-Public Use
  Company Number: 200503487

PATIENT
  Age: 2 Year
  Sex: Female

DRUGS (2)
  1. BOTOX [Suspect]
     Indication: TORTICOLLIS
     Dosage: 80 UNITS ONCE IM
     Route: 030
     Dates: start: 20050119, end: 20050119
  2. BOTOX [Suspect]
     Indication: TORTICOLLIS
     Dosage: 90 UNITS ONCE IM
     Route: 030
     Dates: start: 20050316, end: 20050316

REACTIONS (2)
  - ASTHMA [None]
  - DYSPHAGIA [None]
